FAERS Safety Report 18871447 (Version 3)
Quarter: 2021Q2

REPORT INFORMATION
  Report Type: Report from Study
  Country: MX (occurrence: MX)
  Receive Date: 20210210
  Receipt Date: 20210610
  Transmission Date: 20210717
  Serious: Yes (Other)
  Sender: FDA-Public Use
  Company Number: NVSC2021MX028672

PATIENT
  Sex: Male

DRUGS (1)
  1. EXFORGE HCT [Suspect]
     Active Substance: AMLODIPINE BESYLATE\HYDROCHLOROTHIAZIDE\VALSARTAN
     Indication: PRODUCT USED FOR UNKNOWN INDICATION
     Dosage: UNK
     Route: 065

REACTIONS (13)
  - Prostatic disorder [Unknown]
  - Dry skin [Unknown]
  - Glossodynia [Unknown]
  - Neoplasm malignant [Recovering/Resolving]
  - Positron emission tomogram abnormal [Unknown]
  - Nasal dryness [Unknown]
  - Lung disorder [Unknown]
  - Discomfort [Unknown]
  - Haematochezia [Unknown]
  - Pulmonary mass [Unknown]
  - Feeling abnormal [Unknown]
  - Oesophageal disorder [Unknown]
  - Oral pain [Unknown]
